FAERS Safety Report 9991894 (Version 2)
Quarter: 2014Q2

REPORT INFORMATION
  Report Type: Spontaneous
  Country: US (occurrence: US)
  Receive Date: 20140310
  Receipt Date: 20140509
  Transmission Date: 20141212
  Serious: Yes (Hospitalization)
  Sender: FDA-Public Use
  Company Number: US-BAYER-2014-034000

PATIENT
  Age: 22 Year
  Sex: Female
  Weight: 53.97 kg

DRUGS (3)
  1. YAZ [Suspect]
  2. YASMIN [Suspect]
  3. PEPCID [Concomitant]

REACTIONS (1)
  - Deep vein thrombosis [None]
